FAERS Safety Report 5255559-1 (Version None)
Quarter: 2007Q1

REPORT INFORMATION
  Report Type: 
  Country: None (occurrence: None)
  Receive Date: 20070228
  Receipt Date: 20070212
  Transmission Date: 20070707
  Serious: Yes (Hospitalization)
  Sender: FDA-Public Use
  Company Number: 6030056

PATIENT
  Age: 81 Year
  Sex: Female

DRUGS (9)
  1. CARDENSIEL(TABLET) (BISOPROLOL FUMARATE) [Suspect]
     Indication: CARDIAC FAILURE
     Dosage: ORAL
     Route: 048
     Dates: start: 20061215
  2. METFORMIN (TABLET) (METFORMIN) [Concomitant]
  3. FOZITEC 10 MG (10 MG, TABLET) (FOSINOPRIL) [Concomitant]
  4. CARLYTENE(TABLET) (MOXISYLYTE HYDROCHLORIDE) [Concomitant]
  5. GINKOR (TROXERUTIN, GINGKO BILOBA EXTRACT) [Concomitant]
  6. LASIX [Concomitant]
  7. KAYEXALATE [Concomitant]
  8. TEMERIT (5 MG, TABLET) (NEBIVOLOL) [Concomitant]
  9. COVERSYL (2 MG, TABLET) (PERINDOPRIL) [Concomitant]

REACTIONS (3)
  - PRURITUS [None]
  - PURPURA [None]
  - SKIN BURNING SENSATION [None]
